FAERS Safety Report 17663718 (Version 2)
Quarter: 2020Q2

REPORT INFORMATION
  Report Type: Spontaneous
  Country: US (occurrence: US)
  Receive Date: 20200414
  Receipt Date: 20200414
  Transmission Date: 20200713
  Serious: Yes (Other)
  Sender: FDA-Public Use
  Company Number: US-SUN PHARMACEUTICAL INDUSTRIES LTD-2020R1-242929

PATIENT
  Age: 19 Year
  Sex: Female

DRUGS (7)
  1. RISPERIDONE. [Suspect]
     Active Substance: RISPERIDONE
     Indication: SLEEP DISORDER
     Dosage: UNK
     Route: 065
  2. BENZTROPINE. [Concomitant]
     Active Substance: BENZTROPINE
     Dosage: RESTARTED ON RISPERIDONE  ALONG WITH BENZTROPINE AND CLONAZEPAM
     Route: 065
  3. RISPERIDONE. [Suspect]
     Active Substance: RISPERIDONE
     Dosage: RESTARTED ON RISPERIDONE  ALONG WITH BENZTROPINE AND CLONAZEPAM
     Route: 065
  4. RISPERIDONE. [Suspect]
     Active Substance: RISPERIDONE
     Dosage: RE-STARTED THEN SWITCHED TO ARIPIPRAZOLE
     Route: 065
  5. BENZTROPINE. [Concomitant]
     Active Substance: BENZTROPINE
     Indication: SLEEP DISORDER
     Dosage: UNK
     Route: 065
  6. CLONAZEPAM. [Concomitant]
     Active Substance: CLONAZEPAM
     Indication: SLEEP DISORDER
     Dosage: UNK
     Route: 065
  7. CLONAZEPAM. [Concomitant]
     Active Substance: CLONAZEPAM
     Dosage: RESTARTED ON RISPERIDONE  ALONG WITH BENZTROPINE AND CLONAZEPAM
     Route: 065

REACTIONS (2)
  - Sjogren^s syndrome [Unknown]
  - Extrapyramidal disorder [Recovering/Resolving]
